FAERS Safety Report 19493954 (Version 1)
Quarter: 2021Q3

REPORT INFORMATION
  Report Type: Spontaneous
  Country: US (occurrence: US)
  Receive Date: 20210705
  Receipt Date: 20210705
  Transmission Date: 20211014
  Serious: No
  Sender: FDA-Public Use
  Company Number: NVSC2021US145467

PATIENT
  Age: 8 Year
  Sex: Male

DRUGS (1)
  1. METHOTREXATE. [Suspect]
     Active Substance: METHOTREXATE
     Indication: ACUTE LYMPHOCYTIC LEUKAEMIA
     Dosage: UNK UNK, UNKNOWN
     Route: 042

REACTIONS (3)
  - Pyrexia [Unknown]
  - Rash erythematous [Unknown]
  - Stomatitis [Unknown]
